FAERS Safety Report 18193648 (Version 2)
Quarter: 2021Q3

REPORT INFORMATION
  Report Type: Spontaneous
  Country: CA (occurrence: CA)
  Receive Date: 20200825
  Receipt Date: 20210917
  Transmission Date: 20211014
  Serious: Yes (Other)
  Sender: FDA-Public Use
  Company Number: CA-ALVOGEN-2020-ALVOGEN-113938

PATIENT
  Age: 72 Year
  Sex: Female

DRUGS (26)
  1. ATENOLOL. [Suspect]
     Active Substance: ATENOLOL
     Indication: PRODUCT USED FOR UNKNOWN INDICATION
     Route: 048
  2. APO?NAPROXEN [Concomitant]
     Active Substance: NAPROXEN
     Indication: PRODUCT USED FOR UNKNOWN INDICATION
     Dosage: 500.0MG UNKNOWN
     Route: 048
  3. LANSOPRAZOLE. [Concomitant]
     Active Substance: LANSOPRAZOLE
     Indication: PRODUCT USED FOR UNKNOWN INDICATION
     Dosage: 30.0MG UNKNOWN
     Route: 048
  4. CYCLOBENZAPRINE. [Concomitant]
     Active Substance: CYCLOBENZAPRINE
     Indication: PRODUCT USED FOR UNKNOWN INDICATION
     Dosage: UNKNOWN DOSE EVERY ONE HOUR
     Route: 065
  5. TYLENOL [Concomitant]
     Active Substance: ACETAMINOPHEN
     Indication: ARTHRITIS
     Route: 065
  6. APO CANDESARTAN/HCTZ [Concomitant]
     Active Substance: CANDESARTAN CILEXETIL\HYDROCHLOROTHIAZIDE
     Indication: PRODUCT USED FOR UNKNOWN INDICATION
     Dosage: UNKNOWN DOSE EVERY DAY
     Route: 048
  7. ASA EC [Concomitant]
     Active Substance: ASPIRIN
     Indication: PRODUCT USED FOR UNKNOWN INDICATION
     Route: 048
  8. ATENOLOL. [Concomitant]
     Active Substance: ATENOLOL
     Indication: PRODUCT USED FOR UNKNOWN INDICATION
     Dosage: 25.0MG UNKNOWN
     Route: 065
  9. EFFEXOR [Concomitant]
     Active Substance: VENLAFAXINE HYDROCHLORIDE
     Indication: BACK PAIN
     Route: 065
  10. SYNTHROID [Concomitant]
     Active Substance: LEVOTHYROXINE SODIUM
     Indication: PRODUCT USED FOR UNKNOWN INDICATION
     Route: 048
  11. CANDESARTAN CILEXETIL. [Suspect]
     Active Substance: CANDESARTAN CILEXETIL
     Indication: PRODUCT USED FOR UNKNOWN INDICATION
     Dosage: 20.0MG UNKNOWN
     Route: 048
  12. DULOXETINE. [Suspect]
     Active Substance: DULOXETINE
     Indication: PAIN IN EXTREMITY
     Route: 065
  13. APO?AMITRIPTYLINE [Concomitant]
     Active Substance: AMITRIPTYLINE HYDROCHLORIDE
     Indication: PRODUCT USED FOR UNKNOWN INDICATION
     Route: 048
  14. CLIMARA [Concomitant]
     Active Substance: ESTRADIOL
     Indication: PRODUCT USED FOR UNKNOWN INDICATION
     Dosage: UNKNOWN DOSE ONCE A WEEK
     Route: 065
  15. AMLODIPINE [Concomitant]
     Active Substance: AMLODIPINE BESYLATE
     Indication: PRODUCT USED FOR UNKNOWN INDICATION
     Route: 048
  16. ROSUVASTATIN. [Concomitant]
     Active Substance: ROSUVASTATIN
     Indication: PRODUCT USED FOR UNKNOWN INDICATION
     Route: 048
  17. D?ALPHA TOCOPHEROL [Concomitant]
     Active Substance: .ALPHA.-TOCOPHEROL, D-
     Indication: PRODUCT USED FOR UNKNOWN INDICATION
     Dosage: 400.0IU UNKNOWN
     Route: 065
  18. NAPROXEN. [Concomitant]
     Active Substance: NAPROXEN
     Indication: PRODUCT USED FOR UNKNOWN INDICATION
     Route: 065
  19. ESTALIS [Suspect]
     Active Substance: ESTRADIOL\NORETHINDRONE ACETATE
     Indication: PRODUCT USED FOR UNKNOWN INDICATION
     Route: 065
  20. SANDOSTATIN [Suspect]
     Active Substance: OCTREOTIDE ACETATE
     Indication: PRODUCT USED FOR UNKNOWN INDICATION
     Route: 058
  21. SANDOSTATIN LAR DEPOT [Suspect]
     Active Substance: OCTREOTIDE ACETATE
     Indication: CARCINOID TUMOUR
     Route: 030
  22. AMOXICIL?CLAVUL GI [Concomitant]
     Active Substance: AMOXICILLIN\CLAVULANATE POTASSIUM
     Indication: PRODUCT USED FOR UNKNOWN INDICATION
     Route: 065
  23. AVAMYS [Concomitant]
     Active Substance: FLUTICASONE FUROATE
     Indication: PRODUCT USED FOR UNKNOWN INDICATION
     Route: 045
  24. CYMBALTA [Concomitant]
     Active Substance: DULOXETINE HYDROCHLORIDE
     Indication: BACK PAIN
     Route: 065
  25. DOCUSATE CALCIUM. [Concomitant]
     Active Substance: DOCUSATE CALCIUM
     Indication: PRODUCT USED FOR UNKNOWN INDICATION
     Route: 048
  26. LYRICA [Concomitant]
     Active Substance: PREGABALIN
     Indication: BACK PAIN
     Dosage: 75.0MG UNKNOWN
     Route: 048

REACTIONS (28)
  - Dyspnoea [Unknown]
  - Abdominal pain lower [Unknown]
  - Hypokinesia [Unknown]
  - Sinusitis [Recovered/Resolved]
  - Abdominal distension [Unknown]
  - Abdominal pain [Recovering/Resolving]
  - Body temperature decreased [Unknown]
  - Somnolence [Unknown]
  - Bursitis [Unknown]
  - Nausea [Recovered/Resolved]
  - Back pain [Unknown]
  - Renal impairment [Unknown]
  - Constipation [Unknown]
  - Erythema [Unknown]
  - Fatigue [Unknown]
  - Rhinorrhoea [Unknown]
  - Diarrhoea [Unknown]
  - Pruritus [Recovering/Resolving]
  - Hypotension [Unknown]
  - Acne [Recovering/Resolving]
  - Musculoskeletal pain [Unknown]
  - Productive cough [Unknown]
  - Blood potassium decreased [Unknown]
  - Drug hypersensitivity [Unknown]
  - Dizziness [Unknown]
  - Heart rate decreased [Unknown]
  - Contusion [Unknown]
  - Hot flush [Recovering/Resolving]

NARRATIVE: CASE EVENT DATE: 200909
